FAERS Safety Report 24939939 (Version 2)
Quarter: 2025Q1

REPORT INFORMATION
  Report Type: Spontaneous
  Country: MY (occurrence: MY)
  Receive Date: 20250207
  Receipt Date: 20250326
  Transmission Date: 20250409
  Serious: No
  Sender: TOLMAR
  Company Number: MY-TOLMAR-25MY056114

PATIENT

DRUGS (2)
  1. ELIGARD [Suspect]
     Active Substance: LEUPROLIDE ACETATE
     Indication: Product used for unknown indication
  2. DEVICE [Suspect]
     Active Substance: DEVICE
     Indication: Product used for unknown indication

REACTIONS (4)
  - Intercepted product preparation error [Unknown]
  - Wrong technique in product usage process [Unknown]
  - Syringe issue [Unknown]
  - Device leakage [Unknown]
